FAERS Safety Report 4719416-9 (Version None)
Quarter: 2005Q3

REPORT INFORMATION
  Report Type: 
  Country: None (occurrence: None)
  Receive Date: 20050721
  Receipt Date: 20050401
  Transmission Date: 20060218
  Serious: No
  Sender: FDA-Public Use
  Company Number: US-BRISTOL-MYERS SQUIBB COMPANY-12918405

PATIENT
  Age: 49 Year
  Sex: Female
  Weight: 59 kg

DRUGS (2)
  1. ESTRADIOL [Suspect]
  2. ESTRACE [Suspect]

REACTIONS (3)
  - DRY SKIN [None]
  - SKIN IRRITATION [None]
  - URTICARIA [None]
